FAERS Safety Report 6534735-1 (Version None)
Quarter: 2010Q1

REPORT INFORMATION
  Report Type: 
  Country: None (occurrence: None)
  Receive Date: 20100112
  Receipt Date: 20070531
  Transmission Date: 20100710
  Serious: Yes (Hospitalization)
  Sender: FDA-Public Use
  Company Number: FR-PFIZER INC-2009279273

PATIENT
  Age: 60 Year
  Sex: Male

DRUGS (19)
  1. IRINOTECAN HCL [Suspect]
     Indication: METASTATIC GASTRIC CANCER
     Dosage: TD: 1240 MG
     Dates: start: 20070227
  2. FLUOROURACIL [Suspect]
     Indication: METASTATIC GASTRIC CANCER
     Dosage: TD: 14600 MG/ CONTINUOUS
     Route: 041
     Dates: start: 20070227
  3. FLUOROURACIL [Suspect]
     Dosage: TD: 2760 MG/ BOLUS
     Route: 040
     Dates: start: 20070227
  4. FOLINIC ACID [Suspect]
     Indication: METASTATIC GASTRIC CANCER
     Dosage: TD: 2760 MG
     Dates: start: 20070227
  5. TARDYFERON [Concomitant]
     Dosage: 100 MG, UNK
     Route: 048
  6. XANAX [Concomitant]
     Indication: ANXIETY
     Route: 048
  7. IMOVANE [Concomitant]
     Indication: INSOMNIA
     Dosage: 1.5 DF, UNK
     Route: 048
  8. TRANXENE [Concomitant]
     Indication: ANXIETY
     Dosage: 10 MG, 1X/DAY AS NEEDED
     Route: 041
  9. VALSARTAN AND HYDROCHLOROTHIAZIDE [Concomitant]
     Dosage: 100 MG, UNK
     Route: 048
  10. FORLAX [Concomitant]
     Indication: CONSTIPATION
     Dosage: 2 DF/DAY
     Route: 048
     Dates: start: 20070401, end: 20070527
  11. DOMPERIDONE [Concomitant]
     Dosage: 2 DF, 3X/DAY
     Route: 048
  12. GAVISCON [Concomitant]
     Dosage: 1 TO 3 DF/DAY
     Route: 048
  13. DURAGESIC-100 [Concomitant]
     Route: 048
  14. ACTISKENAN [Concomitant]
     Dosage: 30 MG, UNK
     Route: 048
  15. NEXIUM [Concomitant]
  16. GRANOCYTE [Concomitant]
  17. ZOPHREN [Concomitant]
  18. SOLU-MEDROL [Concomitant]
  19. ATROPINE [Concomitant]

REACTIONS (5)
  - ABDOMINAL PAIN [None]
  - DIARRHOEA [None]
  - FEBRILE NEUTROPENIA [None]
  - GENERAL PHYSICAL HEALTH DETERIORATION [None]
  - VOMITING [None]
